FAERS Safety Report 8858721 (Version 2)
Quarter: 2012Q4

REPORT INFORMATION
  Report Type: 
  Country: US (occurrence: US)
  Receive Date: 20121024
  Receipt Date: 20121028
  Transmission Date: 20130627
  Serious: No
  Sender: FDA-Public Use
  Company Number: US-009507513-1210USA009485

PATIENT
  Sex: Female
  Weight: 73.16 kg

DRUGS (3)
  1. IMPLANON [Suspect]
     Indication: CONTRACEPTION
     Dosage: 68 mg, UNK
     Route: 059
     Dates: start: 20100430, end: 20121018
  2. PROMETHAZINE [Concomitant]
     Dosage: UNK
     Dates: start: 20120911
  3. CARBAMAZEPINE [Concomitant]
     Dosage: UNK

REACTIONS (1)
  - Unintended pregnancy [Not Recovered/Not Resolved]
